FAERS Safety Report 4440494-9 (Version None)
Quarter: 2004Q3

REPORT INFORMATION
  Report Type: 
  Country: None (occurrence: None)
  Receive Date: 20040826
  Receipt Date: 20040528
  Transmission Date: 20050211
  Serious: Yes (Other)
  Sender: FDA-Public Use
  Company Number: 2004-0007111

PATIENT
  Sex: Female

DRUGS (1)
  1. VISTIDE [Suspect]

REACTIONS (1)
  - RENAL FAILURE ACUTE [None]
